FAERS Safety Report 24195188 (Version 1)
Quarter: 2024Q3

REPORT INFORMATION
  Report Type: Report from Study
  Country: US (occurrence: None)
  Receive Date: 20240809
  Receipt Date: 20240809
  Transmission Date: 20241017
  Serious: Yes (Other)
  Sender: ASTRAZENECA
  Company Number: 2024A177007

PATIENT
  Sex: Male
  Weight: 68.5 kg

DRUGS (2)
  1. CALQUENCE [Suspect]
     Active Substance: ACALABRUTINIB
     Indication: B-cell small lymphocytic lymphoma
     Route: 048
     Dates: start: 2021
  2. CALQUENCE [Suspect]
     Active Substance: ACALABRUTINIB
     Indication: Scan lymph nodes
     Route: 048
     Dates: start: 2021

REACTIONS (1)
  - Pancytopenia [Unknown]
